FAERS Safety Report 13473324 (Version 1)
Quarter: 2017Q2

REPORT INFORMATION
  Report Type: Spontaneous
  Country: US (occurrence: US)
  Receive Date: 20170424
  Receipt Date: 20170424
  Transmission Date: 20170830
  Serious: Yes (Other)
  Sender: FDA-Public Use
  Company Number: US-ASTELLAS-2016US035940

PATIENT
  Sex: Female

DRUGS (1)
  1. LEXISCAN [Suspect]
     Active Substance: REGADENOSON
     Indication: CARDIAC STRESS TEST
     Dosage: 0.4MG/5ML, UNKNOWN FREQ.
     Route: 042

REACTIONS (6)
  - Seizure [Unknown]
  - Atrioventricular block [Unknown]
  - Dizziness [Unknown]
  - Atrioventricular block complete [Unknown]
  - Cardiac arrest [Recovered/Resolved]
  - Dyspnoea [Unknown]
